FAERS Safety Report 23992397 (Version 1)
Quarter: 2024Q2

REPORT INFORMATION
  Report Type: Spontaneous
  Country: US (occurrence: None)
  Receive Date: 20240620
  Receipt Date: 20240620
  Transmission Date: 20240716
  Serious: No
  Sender: FDA-Public Use
  Company Number: 2024A127051

PATIENT
  Age: 5956 Day
  Sex: Female

DRUGS (2)
  1. BUDESONIDE\FORMOTEROL [Suspect]
     Active Substance: BUDESONIDE\FORMOTEROL
     Indication: Asthma
     Dosage: UNKNOWN UNKNOWN
     Route: 055
     Dates: start: 20240530
  2. BUDESONIDE\FORMOTEROL [Suspect]
     Active Substance: BUDESONIDE\FORMOTEROL
     Indication: Croup infectious
     Dosage: UNKNOWN UNKNOWN
     Route: 055
     Dates: start: 20240530

REACTIONS (4)
  - Drug hypersensitivity [Unknown]
  - Drug interaction [Unknown]
  - Nervousness [Unknown]
  - Product use issue [Unknown]

NARRATIVE: CASE EVENT DATE: 20240530
